FAERS Safety Report 23198268 (Version 4)
Quarter: 2024Q1

REPORT INFORMATION
  Report Type: Spontaneous
  Country: US (occurrence: US)
  Receive Date: 20231117
  Receipt Date: 20240122
  Transmission Date: 20240410
  Serious: Yes (Hospitalization, Other)
  Sender: FDA-Public Use
  Company Number: US-PFIZER INC-PV202300185792

PATIENT
  Age: 76 Year
  Sex: Female
  Weight: 78.47 kg

DRUGS (9)
  1. OXBRYTA [Suspect]
     Active Substance: VOXELOTOR
     Indication: Sickle cell disease
     Dosage: 1500 MG, DAILY
     Dates: start: 201909, end: 20231026
  2. OXBRYTA [Suspect]
     Active Substance: VOXELOTOR
     Dosage: 500MG, 3 TABLETS ONCE DAILY, ORALLY
     Route: 048
  3. OXBRYTA [Suspect]
     Active Substance: VOXELOTOR
     Dosage: LOWERED THEIR DOSE FROM 3 PER DAY TO 1 DAY
  4. XARELTO [Concomitant]
     Active Substance: RIVAROXABAN
     Dosage: UNK
     Dates: start: 2012
  5. ARANESP [Concomitant]
     Active Substance: DARBEPOETIN ALFA
     Dosage: UNK
     Dates: start: 2010
  6. ALLOPURINOL [Concomitant]
     Active Substance: ALLOPURINOL
     Dosage: UNK
     Dates: start: 2019
  7. ACETAMINOPHEN [Concomitant]
     Active Substance: ACETAMINOPHEN
     Dosage: UNK
     Dates: start: 2008
  8. UMECLIDINIUM BROMIDE\VILANTEROL TRIFENATATE [Concomitant]
     Active Substance: UMECLIDINIUM BROMIDE\VILANTEROL TRIFENATATE
     Dosage: UNK
     Dates: start: 2023
  9. CODEINE [Concomitant]
     Active Substance: CODEINE
     Dosage: UNK
     Dates: start: 2008

REACTIONS (8)
  - Full blood count decreased [Recovered/Resolved]
  - Syncope [Unknown]
  - Intentional product misuse [Unknown]
  - Balance disorder [Unknown]
  - Dizziness [Unknown]
  - Asthenia [Unknown]
  - Hypersomnia [Unknown]
  - Cough [Unknown]

NARRATIVE: CASE EVENT DATE: 20220501
